FAERS Safety Report 25345038 (Version 1)
Quarter: 2025Q2

REPORT INFORMATION
  Report Type: Spontaneous
  Country: US (occurrence: US)
  Receive Date: 20250522
  Receipt Date: 20250522
  Transmission Date: 20250717
  Serious: No
  Sender: GRIFOLS
  Company Number: US-IGSA-BIG0035181

PATIENT
  Age: 19 Year
  Sex: Female
  Weight: 68 kg

DRUGS (23)
  1. GAMUNEX-C [Suspect]
     Active Substance: HUMAN IMMUNOGLOBULIN G
     Indication: Product used for unknown indication
     Dosage: 60 GRAM, Q.WK.
     Route: 042
     Dates: start: 20250502
  2. GAMUNEX-C [Suspect]
     Active Substance: HUMAN IMMUNOGLOBULIN G
     Dosage: 60 GRAM, Q.WK.
     Route: 042
     Dates: start: 20250502
  3. ACETAMINOPHEN [Concomitant]
     Active Substance: ACETAMINOPHEN
     Indication: Premedication
     Route: 048
  4. LIDOCAINE [Concomitant]
     Active Substance: LIDOCAINE
     Route: 003
  5. METHYLPREDNISOLONE SODIUM SUCCINATE [Concomitant]
     Active Substance: METHYLPREDNISOLONE SODIUM SUCCINATE
     Route: 042
  6. AMLODIPINE [Concomitant]
     Active Substance: AMLODIPINE BESYLATE
     Route: 048
  7. CIPROFLOXACIN [Concomitant]
     Active Substance: CIPROFLOXACIN
     Dosage: 500 MILLIGRAM, TID
     Route: 048
  8. FAMOTIDINE [Concomitant]
     Active Substance: FAMOTIDINE
     Dosage: 20 MILLIGRAM, TID
     Route: 048
  9. GLUCAGON [Concomitant]
     Active Substance: GLUCAGON
  10. INSULIN GLARGINE [Concomitant]
     Active Substance: INSULIN GLARGINE
  11. INSULIN LISPRO [Concomitant]
     Active Substance: INSULIN LISPRO
  12. LABETALOL [Concomitant]
     Active Substance: LABETALOL
  13. LEFLUNOMIDE [Concomitant]
     Active Substance: LEFLUNOMIDE
     Route: 048
  14. LEFLUNOMIDE [Concomitant]
     Active Substance: LEFLUNOMIDE
     Route: 048
  15. LIDOCAINE\PRILOCAINE HYDROCHLORIDE [Concomitant]
     Active Substance: LIDOCAINE\PRILOCAINE HYDROCHLORIDE
     Route: 003
  16. MAGNESIUM OXIDE [Concomitant]
     Active Substance: MAGNESIUM OXIDE
     Dosage: 400 MILLIGRAM, QD
     Route: 048
  17. GLUCOPHAGE XR [Concomitant]
     Active Substance: METFORMIN HYDROCHLORIDE
  18. PREDNISONE [Concomitant]
     Active Substance: PREDNISONE
     Dosage: 5 MILLIGRAM, QD
     Route: 048
  19. SODIUM BICARBONATE [Concomitant]
     Active Substance: SODIUM BICARBONATE
  20. TACROLIMUS [Concomitant]
     Active Substance: TACROLIMUS
     Route: 048
  21. TACROLIMUS [Concomitant]
     Active Substance: TACROLIMUS
     Dosage: 0.5 MILLIGRAM, TID
     Route: 048
  22. VALGANCICLOVIR [Concomitant]
     Active Substance: VALGANCICLOVIR
     Dosage: 450 MILLIGRAM, QD
     Route: 048
  23. METFORMIN [Concomitant]
     Active Substance: METFORMIN HYDROCHLORIDE
     Route: 048

REACTIONS (9)
  - Urticaria [Unknown]
  - Eye swelling [Unknown]
  - Swelling face [Recovering/Resolving]
  - Lip swelling [Unknown]
  - Hot flush [Unknown]
  - Headache [Unknown]
  - Anxiety [Unknown]
  - Nervousness [Unknown]
  - Tearfulness [Unknown]

NARRATIVE: CASE EVENT DATE: 20250502
